FAERS Safety Report 5233488-7 (Version None)
Quarter: 2007Q1

REPORT INFORMATION
  Report Type: 
  Country: None (occurrence: None)
  Receive Date: 20070208
  Receipt Date: 20070130
  Transmission Date: 20070707
  Serious: Yes (Other)
  Sender: FDA-Public Use
  Company Number: US-BAYER-200616017BWH

PATIENT
  Age: 42 Year
  Sex: Female

DRUGS (5)
  1. AVELOX [Suspect]
     Indication: PNEUMONIA
     Route: 048
     Dates: start: 20061001, end: 20061001
  2. PREVACID [Concomitant]
  3. ZOLOFT [Concomitant]
  4. AMBIEN [Concomitant]
  5. INHALER (NOS) [Concomitant]

REACTIONS (5)
  - BLOOD CREATINE PHOSPHOKINASE INCREASED [None]
  - BLOOD CREATININE INCREASED [None]
  - HEPATIC ENZYME INCREASED [None]
  - MYALGIA [None]
  - PAIN [None]
